FAERS Safety Report 17666374 (Version 1)
Quarter: 2020Q2

REPORT INFORMATION
  Report Type: Report from Study
  Country: US (occurrence: US)
  Receive Date: 20200414
  Receipt Date: 20200414
  Transmission Date: 20200713
  Serious: No
  Sender: FDA-Public Use
  Company Number: NVSC2020US098680

PATIENT
  Age: 32 Year
  Sex: Female

DRUGS (2)
  1. KISQALI [Suspect]
     Active Substance: RIBOCICLIB
     Dosage: 400 MG
     Route: 065
  2. KISQALI [Suspect]
     Active Substance: RIBOCICLIB
     Indication: BREAST CANCER METASTATIC
     Dosage: 600 MG
     Route: 065

REACTIONS (5)
  - Neutrophil count decreased [Recovering/Resolving]
  - Dry eye [Recovered/Resolved]
  - Alopecia [Unknown]
  - White blood cell count decreased [Recovering/Resolving]
  - Tendonitis [Unknown]
